FAERS Safety Report 11622308 (Version 1)
Quarter: 2015Q4

REPORT INFORMATION
  Report Type: Spontaneous
  Country: US (occurrence: None)
  Receive Date: 20151009
  Receipt Date: 20151009
  Transmission Date: 20160304
  Serious: Yes (Disabling, Other)
  Sender: FDA-Public Use
  Company Number: None

PATIENT
  Age: 73 Year
  Sex: Male
  Weight: 99.79 kg

DRUGS (23)
  1. FOSAMAX [Suspect]
     Active Substance: ALENDRONATE SODIUM
     Indication: OSTEOPOROSIS
     Dosage: ONE PILL
     Route: 048
     Dates: start: 20150215, end: 20150815
  2. BIPAP [Concomitant]
     Active Substance: DEVICE
  3. ASTHMANEX INHALOR [Concomitant]
  4. CLOTRIMAZOLE. [Concomitant]
     Active Substance: CLOTRIMAZOLE
  5. OXYBUTYNIN [Concomitant]
     Active Substance: OXYBUTYNIN
  6. LORATADINE. [Concomitant]
     Active Substance: LORATADINE
  7. FLONASE [Concomitant]
     Active Substance: FLUTICASONE PROPIONATE
  8. ASPIRIN. [Concomitant]
     Active Substance: ASPIRIN
  9. FLUOCINONIDE. [Concomitant]
     Active Substance: FLUOCINONIDE
  10. GLUCOSAMINE HCL [Concomitant]
     Active Substance: GLUCOSAMINE
  11. VITAMIN D [Concomitant]
     Active Substance: CHOLECALCIFEROL
  12. FOLIC ACID. [Concomitant]
     Active Substance: FOLIC ACID
  13. RANITIDINE [Concomitant]
     Active Substance: RANITIDINE\RANITIDINE HYDROCHLORIDE
  14. LISINOPRIL. [Concomitant]
     Active Substance: LISINOPRIL
  15. CARTIA XT [Concomitant]
     Active Substance: DILTIAZEM HYDROCHLORIDE
  16. LUTEIN [Concomitant]
     Active Substance: LUTEIN
  17. FOSAMAX [Suspect]
     Active Substance: ALENDRONATE SODIUM
     Indication: OSTEOPENIA
     Dosage: ONE PILL
     Route: 048
     Dates: start: 20150215, end: 20150815
  18. MAPAP [Concomitant]
     Active Substance: ACETAMINOPHEN
  19. WARFARIN SODIUM. [Concomitant]
     Active Substance: WARFARIN SODIUM
  20. MONTELUKAST SOL [Concomitant]
  21. FUROSEMIDE. [Concomitant]
     Active Substance: FUROSEMIDE
  22. VITAMIN B12 [Concomitant]
     Active Substance: CYANOCOBALAMIN
  23. VITAMIN C [Concomitant]
     Active Substance: ASCORBIC ACID

REACTIONS (9)
  - Atrial fibrillation [None]
  - Tinnitus [None]
  - Dizziness [None]
  - Asthenia [None]
  - Diarrhoea [None]
  - Noninfective gingivitis [None]
  - Palpitations [None]
  - Abdominal pain upper [None]
  - Altered state of consciousness [None]

NARRATIVE: CASE EVENT DATE: 20150704
